FAERS Safety Report 14242519 (Version 1)
Quarter: 2017Q4

REPORT INFORMATION
  Report Type: Spontaneous
  Country: US (occurrence: None)
  Receive Date: 20171130
  Receipt Date: 20171130
  Transmission Date: 20180321
  Serious: Yes (Hospitalization)
  Sender: FDA-Public Use
  Company Number: None

PATIENT
  Age: 17 Year
  Sex: Male

DRUGS (12)
  1. NORTRIOTYLIN [Concomitant]
  2. MYCOPHENOLATE 250MG [Suspect]
     Active Substance: MYCOPHENOLIC ACID
     Indication: RENAL TRANSPLANT
     Route: 048
     Dates: start: 20161112
  3. SIROLIMUS 1MG [Suspect]
     Active Substance: SIROLIMUS
     Indication: RENAL TRANSPLANT
     Route: 048
     Dates: start: 20161113
  4. VITAMIN D [Concomitant]
     Active Substance: CHOLECALCIFEROL
  5. CYMBALTA [Concomitant]
     Active Substance: DULOXETINE HYDROCHLORIDE
  6. EPOGEN [Concomitant]
     Active Substance: ERYTHROPOIETIN
  7. ORENCIA [Concomitant]
     Active Substance: ABATACEPT
  8. LISINOPRIL. [Concomitant]
     Active Substance: LISINOPRIL
  9. BIOTIN [Concomitant]
     Active Substance: BIOTIN
  10. LIPITOR [Concomitant]
     Active Substance: ATORVASTATIN CALCIUM
  11. IRON [Concomitant]
     Active Substance: IRON
  12. MULTIVIT [Concomitant]
     Active Substance: VITAMINS

REACTIONS (2)
  - Infection [None]
  - Therapy cessation [None]

NARRATIVE: CASE EVENT DATE: 201711
